FAERS Safety Report 5895373-7 (Version None)
Quarter: 2008Q3

REPORT INFORMATION
  Report Type: 
  Country: None (occurrence: None)
  Receive Date: 20080923
  Receipt Date: 20080923
  Transmission Date: 20090109
  Serious: Yes (Other)
  Sender: FDA-Public Use
  Company Number: None

PATIENT
  Age: 10 Year
  Sex: Female
  Weight: 46.7205 kg

DRUGS (1)
  1. KENALOG-40 [Suspect]
     Indication: POISONING
     Dosage: 40MG ONCE IM
     Route: 030
     Dates: start: 20080619, end: 20080619

REACTIONS (3)
  - ATROPHY [None]
  - MUSCLE ATROPHY [None]
  - SCAR [None]
